FAERS Safety Report 20711307 (Version 1)
Quarter: 2022Q2

REPORT INFORMATION
  Report Type: Spontaneous
  Country: US (occurrence: None)
  Receive Date: 20220414
  Receipt Date: 20220414
  Transmission Date: 20220721
  Serious: No
  Sender: FDA-Public Use
  Company Number: None

PATIENT
  Sex: Female

DRUGS (1)
  1. XELJANZ XR [Suspect]
     Active Substance: TOFACITINIB CITRATE
     Indication: Rheumatoid arthritis
     Dosage: FREQUENCY : DAILY;?
     Route: 048
     Dates: start: 201804

REACTIONS (7)
  - Pain [None]
  - Drug ineffective [None]
  - Dry eye [None]
  - Joint swelling [None]
  - Peripheral swelling [None]
  - Mood altered [None]
  - Anger [None]
